FAERS Safety Report 22020136 (Version 3)
Quarter: 2023Q1

REPORT INFORMATION
  Report Type: Spontaneous
  Country: AU (occurrence: AU)
  Receive Date: 20230222
  Receipt Date: 20230313
  Transmission Date: 20230417
  Serious: Yes (Life-Threatening, Hospitalization, Other)
  Sender: FDA-Public Use
  Company Number: AU-BRISTOL-MYERS SQUIBB COMPANY-2023-021849

PATIENT
  Age: 66 Year
  Sex: Male
  Weight: 84 kg

DRUGS (18)
  1. AZACITIDINE [Suspect]
     Active Substance: AZACITIDINE
     Indication: Acute myeloid leukaemia
     Route: 042
     Dates: start: 20221214
  2. AZACITIDINE [Suspect]
     Active Substance: AZACITIDINE
     Route: 042
     Dates: start: 20221221
  3. AZACITIDINE [Suspect]
     Active Substance: AZACITIDINE
     Route: 042
     Dates: start: 20230120
  4. AZACITIDINE [Suspect]
     Active Substance: AZACITIDINE
     Route: 042
     Dates: start: 20230126, end: 20230126
  5. AZACITIDINE [Suspect]
     Active Substance: AZACITIDINE
     Route: 042
     Dates: start: 20230127, end: 20230127
  6. AZACITIDINE [Suspect]
     Active Substance: AZACITIDINE
     Route: 042
     Dates: start: 20230123
  7. BGB-11417 [Suspect]
     Active Substance: BGB-11417
     Indication: Acute myeloid leukaemia
     Route: 048
     Dates: start: 20221215
  8. BGB-11417 [Suspect]
     Active Substance: BGB-11417
     Route: 048
     Dates: start: 20221218
  9. BGB-11417 [Suspect]
     Active Substance: BGB-11417
     Route: 048
     Dates: start: 20230120, end: 20230209
  10. PREDNISONE [Concomitant]
     Active Substance: PREDNISONE
     Indication: Mesenteric panniculitis
     Dates: start: 20221205
  11. AMITRIPTYLINE [Concomitant]
     Active Substance: AMITRIPTYLINE
     Indication: Mesenteric panniculitis
     Route: 048
     Dates: start: 202210
  12. AMITRIPTYLINE [Concomitant]
     Active Substance: AMITRIPTYLINE
     Indication: Pain
  13. PANTOPRAZOLE [Concomitant]
     Active Substance: PANTOPRAZOLE
     Indication: Gastrooesophageal reflux disease
     Route: 048
     Dates: start: 2022
  14. SULFAMETHOXAZOLE\TRIMETHOPRIM [Concomitant]
     Active Substance: SULFAMETHOXAZOLE\TRIMETHOPRIM
     Indication: Infection prophylaxis
     Route: 048
     Dates: start: 2022
  15. VALACYCLOVIR HYDROCHLORIDE [Concomitant]
     Active Substance: VALACYCLOVIR HYDROCHLORIDE
     Indication: Antiviral prophylaxis
     Route: 048
     Dates: start: 20221213
  16. ALLOPURINOL [Concomitant]
     Active Substance: ALLOPURINOL
     Indication: Prophylaxis
     Route: 048
     Dates: start: 20221213
  17. PANADOL [Concomitant]
     Active Substance: ACETAMINOPHEN
     Indication: Procedural pain
     Route: 048
     Dates: start: 20221213
  18. ENTECAVIR [Concomitant]
     Active Substance: ENTECAVIR
     Indication: Antiviral prophylaxis
     Route: 048
     Dates: start: 20230118

REACTIONS (1)
  - Febrile neutropenia [Recovered/Resolved]

NARRATIVE: CASE EVENT DATE: 20230210
